FAERS Safety Report 17057537 (Version 3)
Quarter: 2020Q1

REPORT INFORMATION
  Report Type: Spontaneous
  Country: NL (occurrence: NL)
  Receive Date: 20191121
  Receipt Date: 20200212
  Transmission Date: 20200409
  Serious: Yes (Hospitalization, Other)
  Sender: FDA-Public Use
  Company Number: NL-ALK-ABELLO A/S-2019AA003931

PATIENT

DRUGS (4)
  1. GRAZAX [Suspect]
     Active Substance: PHLEUM PRATENSE POLLEN
     Indication: SEASONAL ALLERGY
     Dosage: 75000 SQ
     Dates: start: 20141216, end: 20141216
  2. GRAZAX [Suspect]
     Active Substance: PHLEUM PRATENSE POLLEN
     Dosage: UNK
     Dates: start: 201912
  3. ALUTARD SQ POLLEN [Suspect]
     Active Substance: ALLERGENIC EXTRACTS
     Dosage: 0.5 MILLILITER
     Dates: start: 201710
  4. ALUTARD SQ POLLEN [Suspect]
     Active Substance: ALLERGENIC EXTRACTS
     Indication: PRODUCT USED FOR UNKNOWN INDICATION
     Dosage: 0.7 MILLILITER
     Dates: start: 20141016, end: 201710

REACTIONS (5)
  - Chest discomfort [Unknown]
  - Off label use [Unknown]
  - Oral discomfort [Unknown]
  - Anaphylactic reaction [Recovered/Resolved]
  - Incorrect dose administered [Recovered/Resolved]

NARRATIVE: CASE EVENT DATE: 20141216
